FAERS Safety Report 12186603 (Version 5)
Quarter: 2017Q4

REPORT INFORMATION
  Report Type: Spontaneous
  Country: FR (occurrence: FR)
  Receive Date: 20160317
  Receipt Date: 20171004
  Transmission Date: 20180320
  Serious: Yes (Life-Threatening, Hospitalization, Other)
  Sender: FDA-Public Use
  Company Number: FR-SUN PHARMACEUTICAL INDUSTRIES LTD-2016R1-113087

PATIENT
  Age: 55 Year
  Sex: Female

DRUGS (7)
  1. THERALENE [Suspect]
     Active Substance: TRIMEPRAZINE
     Indication: PSYCHOTIC DISORDER
     Dosage: 20 GTT, PRN (AT NIGHT)
     Route: 065
  2. LOXAPAC [Concomitant]
     Active Substance: LOXAPINE SUCCINATE
     Indication: PSYCHOTIC DISORDER
     Dosage: 300 MG, DAILY
     Route: 065
     Dates: start: 20130103, end: 20130118
  3. CLOZAPINE. [Suspect]
     Active Substance: CLOZAPINE
     Indication: PSYCHOTIC DISORDER
     Dosage: UNK
     Route: 065
     Dates: start: 20130206, end: 201302
  4. SERESTA [Concomitant]
     Active Substance: OXAZEPAM
     Indication: PSYCHOTIC DISORDER
     Dosage: 10 MG, DAILY
     Route: 065
     Dates: start: 201210
  5. RISPERDAL CONSTA [Interacting]
     Active Substance: RISPERIDONE
     Indication: PSYCHOTIC DISORDER
     Dosage: UNK
     Route: 030
     Dates: start: 20130104
  6. RISPERDAL CONSTA [Interacting]
     Active Substance: RISPERIDONE
     Dosage: 50 MG, FORTNIGHT (EVERY 14 DAYS)
     Route: 030
     Dates: end: 201212
  7. SEROPLEX [Interacting]
     Active Substance: ESCITALOPRAM OXALATE
     Indication: PSYCHOTIC DISORDER
     Dosage: 20 MG, DAILY
     Route: 065
     Dates: end: 20130124

REACTIONS (5)
  - Apnoea [Recovering/Resolving]
  - Drug interaction [Recovering/Resolving]
  - Neuroleptic malignant syndrome [Recovering/Resolving]
  - Coma [Recovered/Resolved]
  - Myoclonus [Recovering/Resolving]

NARRATIVE: CASE EVENT DATE: 201212
